FAERS Safety Report 8911988 (Version 1)
Quarter: 2012Q4

REPORT INFORMATION
  Report Type: 
  Country: US (occurrence: US)
  Receive Date: 20121116
  Receipt Date: 20121116
  Transmission Date: 20130627
  Serious: No
  Sender: FDA-Public Use
  Company Number: US-PFIZER INC-2012285527

PATIENT
  Sex: Female

DRUGS (6)
  1. CELEBREX [Suspect]
     Indication: ARTHRITIC PAINS
     Dosage: 200 mg, daily
  2. CELEBREX [Suspect]
     Dosage: 200 mg, 2x/day
     Dates: start: 20121112
  3. MOBIC [Suspect]
     Indication: ARTHRITIC PAINS
     Dosage: UNK
  4. CRESTOR [Concomitant]
     Indication: HIGH CHOLESTEROL
     Dosage: UNK
  5. ZANTAC [Concomitant]
     Indication: HYPERACIDITY
     Dosage: UNK
  6. CLONAZEPAM [Concomitant]
     Indication: SLEEP DIFFICULT
     Dosage: 0.5 mg, UNK

REACTIONS (2)
  - Intentional drug misuse [Unknown]
  - Abdominal pain upper [Unknown]
